FAERS Safety Report 15396320 (Version 1)
Quarter: 2018Q3

REPORT INFORMATION
  Report Type: Report from Study
  Country: None (occurrence: IT)
  Receive Date: 20180918
  Receipt Date: 20180918
  Transmission Date: 20181010
  Serious: Yes (Hospitalization)
  Sender: FDA-Public Use
  Company Number: IT-ABBVIE-18S-083-2482825-00

PATIENT
  Age: 71 Year
  Sex: Female

DRUGS (1)
  1. DUODOPA [Suspect]
     Active Substance: CARBIDOPA\LEVODOPA
     Indication: PARKINSON^S DISEASE
     Dosage: MD 4,8+3, CR 3,3, ED 2,1
     Route: 050
     Dates: start: 20170328

REACTIONS (2)
  - Femur fracture [Unknown]
  - Fall [Unknown]

NARRATIVE: CASE EVENT DATE: 20180830
